FAERS Safety Report 18100206 (Version 1)
Quarter: 2020Q3

REPORT INFORMATION
  Report Type: Spontaneous
  Country: US (occurrence: US)
  Receive Date: 20200731
  Receipt Date: 20200731
  Transmission Date: 20201103
  Serious: No
  Sender: FDA-Public Use
  Company Number: US-JNJFOC-20200742048

PATIENT
  Sex: Male
  Weight: 230 kg

DRUGS (4)
  1. LOSARTAN. [Concomitant]
     Active Substance: LOSARTAN
     Indication: PRODUCT USED FOR UNKNOWN INDICATION
     Route: 065
  2. POTASSIUM CITRATE. [Concomitant]
     Active Substance: POTASSIUM CITRATE
  3. PREDNISON [Interacting]
     Active Substance: PREDNISONE
     Indication: PLANTAR FASCIITIS
     Route: 065
  4. SPRAVATO [Suspect]
     Active Substance: ESKETAMINE
     Indication: MAJOR DEPRESSION
     Route: 065
     Dates: start: 202005

REACTIONS (5)
  - Sensory loss [Unknown]
  - Drug interaction [Unknown]
  - Feeling abnormal [Unknown]
  - Dissociation [Unknown]
  - Drug ineffective [Unknown]
